FAERS Safety Report 19836587 (Version 2)
Quarter: 2021Q4

REPORT INFORMATION
  Report Type: Spontaneous
  Country: BR (occurrence: BR)
  Receive Date: 20210914
  Receipt Date: 20211011
  Transmission Date: 20220303
  Serious: Yes (Hospitalization, Other)
  Sender: FDA-Public Use
  Company Number: BR-BIOGEN-2021BI01038974

PATIENT
  Age: 30 Year
  Sex: Female
  Weight: 53 kg

DRUGS (2)
  1. TYSABRI [Suspect]
     Active Substance: NATALIZUMAB
     Indication: Multiple sclerosis
     Dosage: 44 INFUSIONS
     Route: 065
     Dates: start: 20160726, end: 20200704
  2. TYSABRI [Suspect]
     Active Substance: NATALIZUMAB
     Dosage: 8 INFUSIONS
     Route: 065
     Dates: start: 20200704, end: 20210704

REACTIONS (2)
  - Multiple sclerosis [Recovered/Resolved]
  - Prescribed underdose [Recovered/Resolved]

NARRATIVE: CASE EVENT DATE: 20200704
